FAERS Safety Report 14360624 (Version 3)
Quarter: 2018Q1

REPORT INFORMATION
  Report Type: Spontaneous
  Country: GB (occurrence: GB)
  Receive Date: 20180106
  Receipt Date: 20180207
  Transmission Date: 20180509
  Serious: Yes (Hospitalization, Other)
  Sender: FDA-Public Use
  Company Number: GB-MYLANLABS-2017M1082879

PATIENT
  Age: 15 Year
  Sex: Female

DRUGS (3)
  1. SODIUM VALPROATE [Concomitant]
     Active Substance: VALPROATE SODIUM
     Indication: EPILEPSY
  2. LAMOTRIGINE. [Suspect]
     Active Substance: LAMOTRIGINE
     Indication: EPILEPSY
     Dosage: 25 MG, BID
     Route: 048
     Dates: start: 20120520, end: 20120601
  3. SODIUM VALPROATE [Concomitant]
     Active Substance: VALPROATE SODIUM
     Indication: PRODUCT USED FOR UNKNOWN INDICATION
     Route: 005

REACTIONS (7)
  - Platelet count decreased [Not Recovered/Not Resolved]
  - Rash erythematous [Not Recovered/Not Resolved]
  - Conjunctival disorder [Unknown]
  - Oral disorder [Unknown]
  - Rash [Unknown]
  - Stevens-Johnson syndrome [Not Recovered/Not Resolved]
  - Pyrexia [Unknown]

NARRATIVE: CASE EVENT DATE: 20170602
